FAERS Safety Report 7742574-9 (Version None)
Quarter: 2011Q3

REPORT INFORMATION
  Report Type: 
  Country: None (occurrence: None)
  Receive Date: 20110902
  Receipt Date: 20110826
  Transmission Date: 20111222
  Serious: Yes (Hospitalization)
  Sender: FDA-Public Use
  Company Number: 2011SP040504

PATIENT
  Age: 22 Year
  Sex: Female

DRUGS (8)
  1. MIRTAZAPINE [Suspect]
     Indication: PRODUCT USED FOR UNKNOWN INDICATION
     Dosage: PO 30 MG;QD
     Route: 048
     Dates: start: 20110726
  2. MIRTAZAPINE [Suspect]
     Indication: PRODUCT USED FOR UNKNOWN INDICATION
     Dosage: PO 30 MG;QD
     Route: 048
     Dates: start: 20110607, end: 20110803
  3. ESCITALOPRAM OXALATE [Concomitant]
  4. TRAMADOL HCL [Concomitant]
  5. ZYPREXA [Suspect]
     Indication: SCHIZOPHRENIA
     Dosage: 20 MG;QPM;PO
     Route: 048
     Dates: start: 20110620
  6. ABILIFY [Suspect]
     Indication: PRODUCT USED FOR UNKNOWN INDICATION
     Dosage: 30 MG;QAM;PO 15 DF;QAM
     Route: 048
     Dates: start: 20110615, end: 20110619
  7. ABILIFY [Suspect]
     Indication: PRODUCT USED FOR UNKNOWN INDICATION
     Dosage: 30 MG;QAM;PO 15 DF;QAM
     Route: 048
     Dates: start: 20110620
  8. ESCITALOPRAM OXALATE [Concomitant]

REACTIONS (1)
  - CYTOLYTIC HEPATITIS [None]
